FAERS Safety Report 18968575 (Version 1)
Quarter: 2021Q1

REPORT INFORMATION
  Report Type: Spontaneous
  Country: NL (occurrence: ES)
  Receive Date: 20210304
  Receipt Date: 20210304
  Transmission Date: 20210420
  Serious: Yes (Other)
  Sender: FDA-Public Use
  Company Number: ES-FRESENIUS KABI-FK202102020

PATIENT
  Age: 62 Year
  Sex: Male

DRUGS (2)
  1. PARACETAMOL (MANUFACTURER UNKNOWN) [Suspect]
     Active Substance: ACETAMINOPHEN
     Indication: PAIN
     Dosage: PARACETAMOL (12A)
     Route: 041
     Dates: start: 20201220, end: 20201224
  2. ACETYLSALICYLIC ACID [Suspect]
     Active Substance: ASPIRIN
     Indication: ACUTE MYOCARDIAL INFARCTION
     Dosage: ACETYLSALICYLIC ACID (176A)
     Route: 048
     Dates: start: 20201220

REACTIONS (2)
  - Concomitant disease aggravated [Recovered/Resolved]
  - Urticaria chronic [Recovered/Resolved]

NARRATIVE: CASE EVENT DATE: 20201222
